FAERS Safety Report 9408462 (Version 1)
Quarter: 2013Q3

REPORT INFORMATION
  Report Type: Spontaneous
  Country: US (occurrence: US)
  Receive Date: 20130718
  Receipt Date: 20130718
  Transmission Date: 20140515
  Serious: Yes (Hospitalization, Other)
  Sender: FDA-Public Use
  Company Number: US-ROXANE LABORATORIES, INC.-2013-RO-01166RO

PATIENT
  Age: 79 Year
  Sex: Male

DRUGS (5)
  1. METHOTREXATE [Suspect]
     Indication: PSORIASIS
  2. AMLODIPINE [Suspect]
  3. LISINOPRIL [Suspect]
  4. LOVASTATIN [Suspect]
  5. TRIAMCINOLONE [Suspect]

REACTIONS (6)
  - Toxicity to various agents [Recovered/Resolved]
  - Mucocutaneous ulceration [Recovered/Resolved]
  - Dermatitis [Unknown]
  - Eosinophil count increased [Recovered/Resolved]
  - Staphylococcal bacteraemia [Unknown]
  - Cardiac murmur [Unknown]
